FAERS Safety Report 15678815 (Version 1)
Quarter: 2018Q4

REPORT INFORMATION
  Report Type: Spontaneous
  Country: FR (occurrence: FR)
  Receive Date: 20181202
  Receipt Date: 20181202
  Transmission Date: 20190205
  Serious: Yes (Hospitalization)
  Sender: FDA-Public Use
  Company Number: PHHY2018FR169947

PATIENT
  Age: 66 Year
  Sex: Female
  Weight: 64 kg

DRUGS (9)
  1. ALPRAZOLAM. [Suspect]
     Active Substance: ALPRAZOLAM
     Indication: PAIN
     Dosage: UNK
     Route: 048
  2. SKENAN [Suspect]
     Active Substance: MORPHINE SULFATE
     Indication: PAIN
     Dosage: 60 MG, QD(30 MG MATIN ET SOIR PUIS 10 MG MATIN ET SOIR)
     Route: 048
  3. NOCTAMIDE [Suspect]
     Active Substance: LORMETAZEPAM
     Dosage: 4 MG, BID
     Route: 048
     Dates: start: 20180202
  4. CYMBALTA [Suspect]
     Active Substance: DULOXETINE HYDROCHLORIDE
     Dosage: 1 DF, QD
     Route: 048
     Dates: start: 20180202
  5. SIBELIUM [Suspect]
     Active Substance: FLUNARIZINE
     Indication: PAIN
     Dosage: 1 DF, QD
     Route: 048
  6. SIBELIUM [Suspect]
     Active Substance: FLUNARIZINE
     Dosage: 1 DF, QD
     Route: 048
     Dates: start: 20180202
  7. CYMBALTA [Suspect]
     Active Substance: DULOXETINE HYDROCHLORIDE
     Indication: PAIN
     Dosage: 1 DF, QD
     Route: 048
  8. NOCTAMIDE [Suspect]
     Active Substance: LORMETAZEPAM
     Indication: PAIN
     Dosage: 4 MG, BID
     Route: 048
  9. ACTISKENAN [Suspect]
     Active Substance: MORPHINE SULFATE
     Indication: PAIN
     Dosage: UNK
     Route: 048

REACTIONS (1)
  - Confusional state [Recovered/Resolved]

NARRATIVE: CASE EVENT DATE: 20180202
